FAERS Safety Report 5423143-2 (Version None)
Quarter: 2007Q3

REPORT INFORMATION
  Report Type: 
  Country: None (occurrence: None)
  Receive Date: 20070821
  Receipt Date: 20070808
  Transmission Date: 20080115
  Serious: Yes (Death)
  Sender: FDA-Public Use
  Company Number: B0479920A

PATIENT
  Age: 28 Year
  Sex: Female

DRUGS (4)
  1. LAMICTAL [Suspect]
     Indication: EPILEPSY
     Dosage: 25 MG TWICE PER DAY ORAL
     Route: 048
     Dates: start: 20070125, end: 20070207
  2. FOLIC ACID [Concomitant]
  3. VALPROATE SODIUM [Concomitant]
  4. PHENOXYMETHYLPENICILLIN [Concomitant]

REACTIONS (6)
  - HEPATIC FAILURE [None]
  - LIVER TRANSPLANT [None]
  - LYMPHADENOPATHY [None]
  - MALAISE [None]
  - RASH MACULO-PAPULAR [None]
  - TRANSPLANT FAILURE [None]
